FAERS Safety Report 4790431-2 (Version None)
Quarter: 2005Q4

REPORT INFORMATION
  Report Type: 
  Country: None (occurrence: None)
  Receive Date: 20051005
  Receipt Date: 20050919
  Transmission Date: 20060501
  Serious: Yes (Hospitalization, Other)
  Sender: FDA-Public Use
  Company Number: US_0505116732

PATIENT
  Sex: Male
  Weight: 90 kg

DRUGS (5)
  1. ZYPREXA [Suspect]
     Indication: BIPOLAR DISORDER
     Dates: start: 20000128
  2. RISPERIDONE [Concomitant]
  3. VALIUM [Concomitant]
  4. DEPAKOTE [Concomitant]
  5. NEURONTIN [Concomitant]

REACTIONS (7)
  - BLOOD CREATINE PHOSPHOKINASE INCREASED [None]
  - CHEST DISCOMFORT [None]
  - CHEST PAIN [None]
  - DIABETES MELLITUS [None]
  - DYSPNOEA [None]
  - PANCREATITIS [None]
  - PNEUMONIA [None]
